FAERS Safety Report 7516949-7 (Version None)
Quarter: 2011Q2

REPORT INFORMATION
  Report Type: 
  Country: None (occurrence: None)
  Receive Date: 20110526
  Receipt Date: 20110526
  Transmission Date: 20111010
  Serious: Yes (Life-Threatening, Hospitalization, Disabling, Congenital Anomaly, Other)
  Sender: FDA-Public Use
  Company Number: None

PATIENT
  Sex: Male
  Weight: 3.1752 kg

DRUGS (1)
  1. TERBUTALINE SULFATE [Suspect]
     Indication: PREMATURE LABOUR
     Dosage: 25MG 1 TAB Q 4 HOURS PO OFF AND ONE
     Route: 048
     Dates: start: 20040303, end: 20050708

REACTIONS (5)
  - CONGENITAL ANOMALY [None]
  - MATERNAL DRUGS AFFECTING FOETUS [None]
  - CONVULSION [None]
  - VACCINATION COMPLICATION [None]
  - CEREBRAL HAEMORRHAGE FOETAL [None]
